FAERS Safety Report 12922208 (Version 1)
Quarter: 2016Q4

REPORT INFORMATION
  Report Type: Spontaneous
  Country: US (occurrence: US)
  Receive Date: 20161107
  Receipt Date: 20161107
  Transmission Date: 20170207
  Serious: No
  Sender: FDA-Public Use
  Company Number: None

PATIENT
  Age: 59 Year
  Sex: Male

DRUGS (1)
  1. TARGRETIN [Suspect]
     Active Substance: BEXAROTENE
     Indication: MYCOSIS FUNGOIDES
     Dosage: 225MG (3X75MG) QD ORAL
     Route: 048
     Dates: start: 20121017, end: 20161107

REACTIONS (1)
  - Swelling face [None]

NARRATIVE: CASE EVENT DATE: 20161101
